FAERS Safety Report 4747795-5 (Version None)
Quarter: 2005Q3

REPORT INFORMATION
  Report Type: 
  Country: None (occurrence: None)
  Receive Date: 20050817
  Receipt Date: 20050817
  Transmission Date: 20060218
  Serious: Yes (Disabling)
  Sender: FDA-Public Use
  Company Number: None

PATIENT
  Sex: Male
  Weight: 120 kg

DRUGS (1)
  1. ZIPRASIDONE    20MG    PFIZERS [Suspect]
     Dosage: 40MG  BID  ORAL
     Route: 048
     Dates: start: 20050321, end: 20050406

REACTIONS (2)
  - ASTHENIA [None]
  - DIZZINESS [None]
